FAERS Safety Report 9579034 (Version 1)
Quarter: 2013Q4

REPORT INFORMATION
  Report Type: Spontaneous
  Country: US (occurrence: US)
  Receive Date: 20131001
  Receipt Date: 20131001
  Transmission Date: 20140711
  Serious: No
  Sender: FDA-Public Use
  Company Number: US-AMGEN-USASP2013016212

PATIENT
  Sex: Female
  Weight: 71 kg

DRUGS (11)
  1. ENBREL [Suspect]
     Indication: RHEUMATOID ARTHRITIS
     Dosage: 50 MG, QWK
     Route: 058
     Dates: start: 2009, end: 2010
  2. PROMETRIUM                         /00110701/ [Concomitant]
     Dosage: UNK
  3. ALEVE [Concomitant]
     Dosage: UNK
  4. PROCARDIA                          /00340701/ [Concomitant]
     Dosage: UNK
  5. BIOTIN [Concomitant]
     Dosage: UNK
  6. ESTRADIOL [Concomitant]
     Dosage: UNK
  7. CALCIUM + VITAMIN D                /01483701/ [Concomitant]
     Dosage: UNK
  8. FOLIC ACID [Concomitant]
     Dosage: UNK
  9. POTASSIUM [Concomitant]
     Dosage: UNK
  10. MAGNESIUM [Concomitant]
     Dosage: UNK
  11. MULTIVITAMINS, PLAIN [Concomitant]
     Dosage: UNK

REACTIONS (2)
  - Rubber sensitivity [Not Recovered/Not Resolved]
  - Skin lesion [Not Recovered/Not Resolved]
